FAERS Safety Report 13003692 (Version 20)
Quarter: 2020Q2

REPORT INFORMATION
  Report Type: Spontaneous
  Country: US (occurrence: US)
  Receive Date: 20161206
  Receipt Date: 20200608
  Transmission Date: 20200713
  Serious: Yes (Hospitalization, Other)
  Sender: FDA-Public Use
  Company Number: US-ACTELION-A-NJ2016-146391

PATIENT
  Age: 64 Year
  Sex: Male
  Weight: 81.63 kg

DRUGS (13)
  1. VELETRI [Suspect]
     Active Substance: EPOPROSTENOL
     Dosage: 35 NG/KG, PER MIN
     Route: 042
     Dates: start: 20150618
  2. REVATIO [Concomitant]
     Active Substance: SILDENAFIL CITRATE
     Dosage: 20 MG, TID
  3. PRAVASTATIN. [Concomitant]
     Active Substance: PRAVASTATIN
     Dosage: 40 MG, 5 DAYS/WEEK
  4. VELETRI [Suspect]
     Active Substance: EPOPROSTENOL
     Dosage: 60 NG/KG, PER MIN
     Route: 042
  5. VELETRI [Suspect]
     Active Substance: EPOPROSTENOL
     Dosage: 36 MG/KG, PER MIN
     Route: 042
     Dates: start: 20150618
  6. LETAIRIS [Concomitant]
     Active Substance: AMBRISENTAN
     Dosage: 10 MG, UNK
  7. VELETRI [Suspect]
     Active Substance: EPOPROSTENOL
     Dosage: 50 NG/KG, PER MIN
     Route: 042
  8. WARFARIN [Concomitant]
     Active Substance: WARFARIN
     Dosage: 5 MG, PER WARFARIN CLINIC
  9. AMIODARONE [Concomitant]
     Active Substance: AMIODARONE
     Dosage: 200 MG, QD
  10. VELETRI [Suspect]
     Active Substance: EPOPROSTENOL
     Indication: PULMONARY ARTERIAL HYPERTENSION
     Dosage: 64 NG/KG, PER MIN
     Route: 042
  11. VELETRI [Suspect]
     Active Substance: EPOPROSTENOL
     Dosage: 58 NG/KG, PER MIN
     Route: 042
  12. VELETRI [Suspect]
     Active Substance: EPOPROSTENOL
     Dosage: 62 NG/KG, PER MIN
     Route: 042
  13. VELETRI [Suspect]
     Active Substance: EPOPROSTENOL
     Dosage: UNK
     Route: 042

REACTIONS (41)
  - Pneumonia [Unknown]
  - Dyspnoea exertional [Recovering/Resolving]
  - Pulmonary arterial hypertension [Unknown]
  - Weight decreased [Unknown]
  - Arthralgia [Unknown]
  - Device kink [Unknown]
  - Device occlusion [Unknown]
  - Malaise [Unknown]
  - Product dose omission [Recovering/Resolving]
  - Pain [Unknown]
  - Palpitations [Unknown]
  - Device delivery system issue [Unknown]
  - Syncope [Unknown]
  - Hypoaesthesia [Unknown]
  - Dyspnoea [Unknown]
  - Pyrexia [Unknown]
  - Catheter site pruritus [Unknown]
  - Photosensitivity reaction [Unknown]
  - Acute respiratory failure [Unknown]
  - Cerebrovascular accident [Unknown]
  - Tachypnoea [Unknown]
  - Condition aggravated [Unknown]
  - Decreased appetite [Unknown]
  - Gait disturbance [Recovering/Resolving]
  - Device malfunction [Unknown]
  - Flushing [Unknown]
  - Fall [Unknown]
  - Pulmonary oedema [Recovering/Resolving]
  - Fatigue [Unknown]
  - Oxygen consumption increased [Unknown]
  - Confusional state [Recovering/Resolving]
  - Chest pain [Unknown]
  - Feeling hot [Recovered/Resolved]
  - Tooth extraction [Unknown]
  - Breath sounds abnormal [Recovering/Resolving]
  - Oxygen saturation decreased [Recovering/Resolving]
  - Device alarm issue [Unknown]
  - Influenza [Unknown]
  - Hyperhidrosis [Unknown]
  - Headache [Unknown]
  - Loose tooth [Unknown]

NARRATIVE: CASE EVENT DATE: 20170222
